FAERS Safety Report 16638362 (Version 2)
Quarter: 2021Q4

REPORT INFORMATION
  Report Type: Spontaneous
  Country: JP (occurrence: JP)
  Receive Date: 20190726
  Receipt Date: 20211008
  Transmission Date: 20220303
  Serious: Yes (Other)
  Sender: FDA-Public Use
  Company Number: 2019SF05578

PATIENT
  Age: 59 Year
  Sex: Female
  Weight: 63 kg

DRUGS (2)
  1. LYNPARZA [Suspect]
     Active Substance: OLAPARIB
     Indication: Ovarian cancer
     Route: 048
  2. LYNPARZA [Suspect]
     Active Substance: OLAPARIB
     Indication: Ovarian cancer
     Dosage: 600 MG NUMBER OF SEPARATE DOSAGES UNKNOWN
     Route: 048

REACTIONS (4)
  - Malignant neoplasm progression [Unknown]
  - Neutrophil count decreased [Unknown]
  - Anaemia [Unknown]
  - Drug hypersensitivity [Unknown]
